FAERS Safety Report 18548392 (Version 1)
Quarter: 2020Q4

REPORT INFORMATION
  Report Type: Spontaneous
  Country: US (occurrence: US)
  Receive Date: 20201125
  Receipt Date: 20201125
  Transmission Date: 20210114
  Serious: No
  Sender: FDA-Public Use
  Company Number: US-GILEAD-2020-0505521

PATIENT
  Sex: Male

DRUGS (5)
  1. VITAMIN A [RETINOL] [Concomitant]
     Active Substance: RETINOL
  2. VITAMIN D [COLECALCIFEROL] [Concomitant]
     Active Substance: CHOLECALCIFEROL
  3. VITAMIN C [Concomitant]
     Active Substance: ASCORBIC ACID
  4. FLUORIDE [SODIUM FLUORIDE] [Concomitant]
     Active Substance: SODIUM FLUORIDE
  5. SOFOSBUVIR;VELPATASVIR [Suspect]
     Active Substance: SOFOSBUVIR\VELPATASVIR
     Indication: CHRONIC HEPATITIS C
     Dosage: 1 DOSAGE FORM, QD
     Route: 048
     Dates: start: 20201105

REACTIONS (1)
  - Diarrhoea [Recovered/Resolved]
